FAERS Safety Report 14417915 (Version 1)
Quarter: 2018Q1

REPORT INFORMATION
  Report Type: Spontaneous
  Country: US (occurrence: US)
  Receive Date: 20180119
  Receipt Date: 20180119
  Transmission Date: 20180509
  Serious: No
  Sender: FDA-Public Use
  Company Number: None

PATIENT
  Age: 58 Year
  Sex: Female
  Weight: 49.5 kg

DRUGS (9)
  1. VITAMIN D3 [Concomitant]
     Active Substance: CHOLECALCIFEROL
  2. CENTRUM WOMEN^S SILVER [Concomitant]
  3. FORTEO [Suspect]
     Active Substance: TERIPARATIDE
     Indication: OSTEOPOROSIS
     Dates: start: 20171211, end: 20171217
  4. OSPHENA [Concomitant]
     Active Substance: OSPEMIFENE
  5. VITAMIN K2 [Concomitant]
     Active Substance: MENAQUINONE 6
  6. CITRICAL PETITES [Concomitant]
  7. FISH OIL [Concomitant]
     Active Substance: FISH OIL
  8. SYNTHROID [Concomitant]
     Active Substance: LEVOTHYROXINE SODIUM
  9. SERTRALINE [Concomitant]
     Active Substance: SERTRALINE HYDROCHLORIDE

REACTIONS (2)
  - Bone pain [None]
  - Movement disorder [None]

NARRATIVE: CASE EVENT DATE: 20171218
